FAERS Safety Report 24219130 (Version 1)
Quarter: 2024Q3

REPORT INFORMATION
  Report Type: Spontaneous
  Country: ES (occurrence: ES)
  Receive Date: 20240816
  Receipt Date: 20240816
  Transmission Date: 20241017
  Serious: Yes (Hospitalization, Other)
  Sender: FRESENIUS KABI
  Company Number: None

PATIENT
  Age: 50 Year
  Sex: Male
  Weight: 84 kg

DRUGS (7)
  1. OXALIPLATIN [Suspect]
     Active Substance: OXALIPLATIN
     Indication: Adenocarcinoma of colon
     Dosage: FIRST CYCLE 20/05/2024 SECOND CYCLE 10/06/2024?ROUTE OF ADMINISTRATION: INTRAVENOUS
     Dates: start: 20240520
  2. SERTRALIN (2537A) [Concomitant]
     Indication: Product used for unknown indication
  3. CLEXANE 4.000 UI (40 mg)/ 0,4 ml SOLUTION FOR INJECTION IN PREFILLED S [Concomitant]
     Indication: Product used for unknown indication
     Dosage: DOSAGE FORM: SOLUTION FOR INJECTION
  4. QUDIX 25 mg FILM COATED TABLETS EFG [Concomitant]
     Indication: Product used for unknown indication
     Dosage: DOSAGE FORM: FILM COATED TABLET
  5. ZYPREXA 2,5 mg COATED TABLETS [Concomitant]
     Indication: Product used for unknown indication
     Dosage: DOSAGE FORM: COATED TABLET
  6. LORAZEPAM [Concomitant]
     Active Substance: LORAZEPAM
     Indication: Product used for unknown indication
  7. Ondansetron 8 mg tablets [Concomitant]
     Indication: Product used for unknown indication
     Dosage: DOSAGE FORM: TABLET

REACTIONS (5)
  - Jaundice [Recovered/Resolved]
  - Nausea [Recovered/Resolved]
  - Liver function test abnormal [Recovered/Resolved]
  - Malaise [Recovered/Resolved]
  - Pyrexia [Recovered/Resolved]

NARRATIVE: CASE EVENT DATE: 20240617
